FAERS Safety Report 10425785 (Version 3)
Quarter: 2014Q4

REPORT INFORMATION
  Report Type: Spontaneous
  Country: JP (occurrence: JP)
  Receive Date: 20140903
  Receipt Date: 20141029
  Transmission Date: 20150528
  Serious: Yes (Life-Threatening, Hospitalization)
  Sender: FDA-Public Use
  Company Number: JP-B.I. PHARMACEUTICALS,INC./RIDGEFIELD-2014-BI-40732NB

PATIENT
  Age: 72 Year
  Sex: Female
  Weight: 72.6 kg

DRUGS (8)
  1. SUGLAT [Suspect]
     Active Substance: IPRAGLIFLOZIN L-PROLINE
     Indication: HYPERGLYCAEMIA
     Dosage: 50 MG
     Route: 048
     Dates: start: 201407, end: 20140714
  2. LANTUS [Concomitant]
     Active Substance: INSULIN GLARGINE
     Indication: TYPE 2 DIABETES MELLITUS
     Route: 058
  3. ZYLORIC [Concomitant]
     Active Substance: ALLOPURINOL
     Indication: HYPERURICAEMIA
     Dosage: 100 MG
     Route: 048
  4. CRESTOR [Concomitant]
     Active Substance: ROSUVASTATIN CALCIUM
     Indication: DYSLIPIDAEMIA
     Dosage: 2.5 MG
     Route: 048
  5. NOVORAPID [Concomitant]
     Active Substance: INSULIN ASPART
     Indication: TYPE 2 DIABETES MELLITUS
     Route: 058
  6. MICOMBI COMBINATION [Suspect]
     Active Substance: HYDROCHLOROTHIAZIDE\TELMISARTAN
     Indication: HYPERTENSION
     Dosage: 1 ANZ
     Route: 048
  7. ALDACTONE [Suspect]
     Active Substance: SPIRONOLACTONE
     Indication: HYPERTENSION
     Dosage: 50 MG
     Route: 048
  8. CALBLOCK [Concomitant]
     Active Substance: AZELNIDIPINE
     Indication: HYPERTENSION
     Dosage: 16 MG
     Route: 048

REACTIONS (4)
  - Hyperkalaemia [Recovered/Resolved]
  - Dehydration [Recovered/Resolved]
  - Hyponatraemia [Recovered/Resolved]
  - Duodenal polyp [Not Recovered/Not Resolved]

NARRATIVE: CASE EVENT DATE: 201407
